FAERS Safety Report 17081347 (Version 1)
Quarter: 2019Q4

REPORT INFORMATION
  Report Type: Spontaneous
  Country: US (occurrence: US)
  Receive Date: 20191029
  Receipt Date: 20191029
  Transmission Date: 20200122
  Serious: Yes (Disabling)
  Sender: FDA-Public Use
  Company Number: None

PATIENT
  Age: 39 Year
  Sex: Male
  Weight: 99.79 kg

DRUGS (7)
  1. BASAGLAR [Concomitant]
     Active Substance: INSULIN GLARGINE
  2. INSULIN LINSPRO KWIK PEN 100 U/M [Suspect]
     Active Substance: INSULIN LISPRO
     Indication: TYPE 2 DIABETES MELLITUS
     Dosage: ?          OTHER STRENGTH:100 U/M;QUANTITY:100 UG MICROGRAM(S);?
     Route: 058
     Dates: start: 20190930, end: 20191007
  3. 81MG ASPIRIN [Concomitant]
  4. VITAMIN D3 [Concomitant]
     Active Substance: CHOLECALCIFEROL
  5. OMEGA 3 KRILL OIL [Concomitant]
  6. HUMALOG KWIKPEN [Concomitant]
     Active Substance: INSULIN LISPRO
  7. GLUCOSE METER, TEST STRIPS [Concomitant]

REACTIONS (7)
  - Depression [None]
  - Fatigue [None]
  - Blood glucose increased [None]
  - Confusional state [None]
  - Anxiety [None]
  - Asthenia [None]
  - Tremor [None]

NARRATIVE: CASE EVENT DATE: 20191002
